FAERS Safety Report 5413112-0 (Version None)
Quarter: 2007Q3

REPORT INFORMATION
  Report Type: 
  Country: None (occurrence: None)
  Receive Date: 20070809
  Receipt Date: 20070802
  Transmission Date: 20080115
  Serious: Yes (Hospitalization)
  Sender: FDA-Public Use
  Company Number: 2007-03628

PATIENT
  Age: 31 Year
  Sex: Female

DRUGS (1)
  1. MINOCYCLINE HYDROCHLORIDE [Suspect]
     Indication: ACNE
     Dosage: 3 WEEKS, ORAL
     Route: 048
     Dates: start: 20060101, end: 20060101

REACTIONS (4)
  - BRAIN OEDEMA [None]
  - DRUG HYPERSENSITIVITY [None]
  - DRUG RASH WITH EOSINOPHILIA AND SYSTEMIC SYMPTOMS [None]
  - MENINGITIS [None]
